FAERS Safety Report 5735113-5 (Version None)
Quarter: 2008Q2

REPORT INFORMATION
  Report Type: 
  Country: None (occurrence: None)
  Receive Date: 20080512
  Receipt Date: 20080507
  Transmission Date: 20081010
  Serious: Yes (Hospitalization)
  Sender: FDA-Public Use
  Company Number: TW-ASTRAZENECA-2008AP03509

PATIENT
  Age: 8706 Day
  Sex: Male
  Weight: 67.5 kg

DRUGS (1)
  1. SEROQUEL [Suspect]
     Indication: PSYCHOTIC DISORDER
     Route: 048
     Dates: start: 20070811, end: 20070814

REACTIONS (1)
  - RASH ERYTHEMATOUS [None]
